FAERS Safety Report 7508340-4 (Version None)
Quarter: 2011Q2

REPORT INFORMATION
  Report Type: 
  Country: None (occurrence: None)
  Receive Date: 20110527
  Receipt Date: 20110520
  Transmission Date: 20111010
  Serious: Yes (Other)
  Sender: FDA-Public Use
  Company Number: US-PFIZER INC-2011088051

PATIENT
  Sex: Female

DRUGS (3)
  1. TRILEPTAL [Concomitant]
     Dosage: UNK
  2. GEODON [Suspect]
     Indication: MAJOR DEPRESSION
     Dosage: 60 MG, ONCE A DAY
     Route: 048
     Dates: start: 20110414, end: 20110421
  3. EFFEXOR XR [Concomitant]
     Indication: DEPRESSION
     Dosage: UNK

REACTIONS (1)
  - SWELLING FACE [None]
